FAERS Safety Report 7522081-9 (Version None)
Quarter: 2011Q2

REPORT INFORMATION
  Report Type: 
  Country: None (occurrence: None)
  Receive Date: 20110520
  Receipt Date: 20110325
  Transmission Date: 20111010
  Serious: Yes (Other)
  Sender: FDA-Public Use
  Company Number: 2011028016

PATIENT
  Sex: Female
  Weight: 72.5755 kg

DRUGS (9)
  1. HYDROCHLOROTHIAZIDE [Concomitant]
  2. IBUPROFEN [Concomitant]
  3. SYNTHROID [Concomitant]
  4. VALTREX [Concomitant]
  5. HIZENTRA [Suspect]
     Indication: IMMUNODEFICIENCY COMMON VARIABLE
     Dosage: (8 G 1X/WEEK, 40 ML IN 4 SITES OVER 1 HOUR 7 MINUTES SUBCUTANEOUS)
     Route: 058
     Dates: start: 20101214
  6. SUCRALFATE [Concomitant]
  7. NEXIUM [Concomitant]
  8. BACLOFEN [Concomitant]
  9. RECLAST [Concomitant]

REACTIONS (1)
  - SINUSITIS [None]
